FAERS Safety Report 4377431-1 (Version None)
Quarter: 2004Q2

REPORT INFORMATION
  Report Type: 
  Country: None (occurrence: None)
  Receive Date: 20040609
  Receipt Date: 20040309
  Transmission Date: 20050107
  Serious: No
  Sender: FDA-Public Use
  Company Number: 2004198313US

PATIENT
  Age: 53 Year
  Sex: Male
  Weight: 82.5 kg

DRUGS (2)
  1. BEXTRA [Suspect]
     Indication: MENISCUS LESION
     Dosage: 10 MG, BID
  2. CELEBREX [Suspect]
     Indication: CHONDROMALACIA
     Dosage: 200 MG, BID

REACTIONS (1)
  - GAMMA-GLUTAMYLTRANSFERASE INCREASED [None]
